FAERS Safety Report 21193271 (Version 1)
Quarter: 2022Q3

REPORT INFORMATION
  Report Type: Spontaneous
  Country: CN (occurrence: None)
  Receive Date: 20220810
  Receipt Date: 20220810
  Transmission Date: 20221027
  Serious: Yes (Hospitalization)
  Sender: FDA-Public Use
  Company Number: CN-Merck Healthcare KGaA-9341523

PATIENT
  Age: 58 Year
  Sex: Female
  Weight: 51 kg

DRUGS (2)
  1. GLUCOPHAGE [Suspect]
     Active Substance: METFORMIN HYDROCHLORIDE
     Indication: Diabetes mellitus
     Route: 048
     Dates: start: 20220501, end: 20220713
  2. ACARBOSE [Suspect]
     Active Substance: ACARBOSE
     Indication: Diabetes mellitus
     Route: 048
     Dates: start: 20220501, end: 20220713

REACTIONS (5)
  - Hypokalaemia [Recovering/Resolving]
  - Renal impairment [Recovering/Resolving]
  - Paralysis [Recovering/Resolving]
  - Asthenia [Recovering/Resolving]
  - Decreased appetite [Recovering/Resolving]

NARRATIVE: CASE EVENT DATE: 20220708
